FAERS Safety Report 9374634 (Version 1)
Quarter: 2013Q2

REPORT INFORMATION
  Report Type: Report from Study
  Country: FR (occurrence: FR)
  Receive Date: 20130628
  Receipt Date: 20130628
  Transmission Date: 20140414
  Serious: Yes (Hospitalization)
  Sender: FDA-Public Use
  Company Number: FR-ROCHE-1241173

PATIENT
  Age: 54 Year
  Sex: Male

DRUGS (26)
  1. CAPECITABINE [Suspect]
     Indication: GASTRIC CANCER
     Route: 065
     Dates: start: 20080116
  2. CAPECITABINE [Suspect]
     Dosage: DOSE FOR 15 DAYS AND AND 1 WEEK WASHOUT.
     Route: 065
     Dates: start: 20080317
  3. CAPECITABINE [Suspect]
     Dosage: 500 MG 2CT AND A HALF IN THE MORNING AND IN THE EVENING DURING 14 DAYS AND ONE WEEK OFF
     Route: 065
  4. EPIRUBICIN HCL [Suspect]
     Indication: GASTRIC CANCER
     Route: 065
     Dates: end: 20080116
  5. EPIRUBICIN HCL [Suspect]
     Route: 042
     Dates: start: 20080317
  6. CISPLATIN [Suspect]
     Indication: GASTRIC CANCER
     Route: 065
     Dates: start: 20130116
  7. CISPLATIN [Suspect]
     Route: 042
     Dates: start: 20080317
  8. PHLOROGLUCINOL [Concomitant]
  9. INNOHEP [Concomitant]
     Indication: THROMBOSIS PROPHYLAXIS
     Route: 048
  10. HEPARIN [Concomitant]
     Indication: THROMBOSIS PROPHYLAXIS
     Dosage: 25000 IU/D
     Route: 065
  11. HEPARIN [Concomitant]
     Route: 065
  12. MOPRAL (FRANCE) [Concomitant]
     Route: 048
  13. SPECIAFOLDINE [Concomitant]
     Indication: ANAEMIA
     Dosage: IN MORNING AND AT NOON
     Route: 048
  14. SPECIAFOLDINE [Concomitant]
     Route: 048
  15. SPASFON (FRANCE) [Concomitant]
     Indication: PAIN
     Route: 048
  16. LEVOCARNIL [Concomitant]
     Route: 048
  17. LIPANTHYL [Concomitant]
     Indication: HYPERCHOLESTEROLAEMIA
     Route: 048
  18. LEXOMIL [Concomitant]
     Dosage: 0.25-0.25-0.5
     Route: 065
  19. OXYCONTIN [Concomitant]
     Route: 065
  20. LEVOCARNITINE [Concomitant]
     Route: 065
  21. FUMAFER [Concomitant]
     Route: 048
  22. VFEND [Concomitant]
     Route: 065
  23. TRANXENE [Concomitant]
     Route: 065
  24. LEXOMIL [Concomitant]
     Dosage: 0.25- 0.25- 0.5
     Route: 065
  25. SEVREDOL [Concomitant]
     Route: 065
  26. DEROXAT [Concomitant]
     Route: 065

REACTIONS (1)
  - General physical health deterioration [Recovering/Resolving]
